FAERS Safety Report 8242052-7 (Version None)
Quarter: 2012Q1

REPORT INFORMATION
  Report Type: 
  Country: None (occurrence: None)
  Receive Date: 20120329
  Receipt Date: 20120323
  Transmission Date: 20120608
  Serious: No
  Sender: FDA-Public Use
  Company Number: US-BIOGENIDEC-2012BI010382

PATIENT
  Sex: Male

DRUGS (2)
  1. TYSABRI [Suspect]
     Route: 042
     Dates: start: 20110822, end: 20120110
  2. TYSABRI [Suspect]
     Indication: MULTIPLE SCLEROSIS
     Route: 042
     Dates: start: 20080417, end: 20100927

REACTIONS (6)
  - GENERAL PHYSICAL HEALTH DETERIORATION [None]
  - CENTRAL NERVOUS SYSTEM LESION [None]
  - FALL [None]
  - MULTIPLE SCLEROSIS RELAPSE [None]
  - TOOTH ABSCESS [None]
  - TOOTH AVULSION [None]
